FAERS Safety Report 25937687 (Version 2)
Quarter: 2025Q4

REPORT INFORMATION
  Report Type: Spontaneous
  Country: US (occurrence: US)
  Receive Date: 20251018
  Receipt Date: 20251024
  Transmission Date: 20260118
  Serious: Yes (Life-Threatening, Hospitalization, Other)
  Sender: AUROBINDO
  Company Number: US-AUROBINDO-AUR-APL-2025-052219

PATIENT
  Age: 77 Year
  Sex: Female

DRUGS (5)
  1. HYDRALAZINE HYDROCHLORIDE [Suspect]
     Active Substance: HYDRALAZINE HYDROCHLORIDE
     Indication: Hypertension
     Dosage: 100 MILLIGRAM, TWO TIMES A DAY
     Route: 065
  2. ATENOLOL\CHLORTHALIDONE [Suspect]
     Active Substance: ATENOLOL\CHLORTHALIDONE
     Indication: Hypertension
     Dosage: UNK (100/25 MG)
     Route: 065
  3. METHYLPREDNISOLONE [Suspect]
     Active Substance: METHYLPREDNISOLONE
     Indication: Anaphylactic reaction
     Dosage: 60 MILLIGRAM, 3 TIMES A DAY
     Route: 065
  4. METHYLPREDNISOLONE [Suspect]
     Active Substance: METHYLPREDNISOLONE
     Indication: Angioedema
  5. PIPERACILLIN AND TAZOBACTAM [Suspect]
     Active Substance: PIPERACILLIN SODIUM\TAZOBACTAM SODIUM
     Indication: Tracheitis
     Dosage: UNK
     Route: 065

REACTIONS (11)
  - Anti-neutrophil cytoplasmic antibody positive vasculitis [Unknown]
  - Laryngeal oedema [Recovered/Resolved]
  - Vasculitis [Unknown]
  - Pain in extremity [Unknown]
  - Periorbital swelling [Unknown]
  - Dysphonia [Recovered/Resolved]
  - Oropharyngeal pain [Unknown]
  - Tongue ulceration [Unknown]
  - Stridor [Unknown]
  - Arthralgia [Recovering/Resolving]
  - Myalgia [Recovering/Resolving]
